FAERS Safety Report 9196708 (Version 4)
Quarter: 2013Q2

REPORT INFORMATION
  Report Type: Spontaneous
  Country: DE (occurrence: DE)
  Receive Date: 20130328
  Receipt Date: 20130515
  Transmission Date: 20140414
  Serious: Yes (Hospitalization)
  Sender: FDA-Public Use
  Company Number: DE-EISAI INC-E2007-01120-SPO-DE

PATIENT
  Age: 49 Year
  Sex: Female

DRUGS (13)
  1. FYCOMPA (PERAMPANEL) [Suspect]
     Indication: EPILEPSY
     Route: 048
     Dates: start: 20130305, end: 20130311
  2. FYCOMPA (PERAMPANEL) [Interacting]
     Route: 048
     Dates: start: 20130312, end: 20130320
  3. FYCOMPA (PERAMPANEL) [Interacting]
     Route: 048
     Dates: start: 20130321, end: 20130326
  4. FYCOMPA (PERAMPANEL) [Interacting]
     Route: 048
     Dates: start: 20130327, end: 20130406
  5. FYCOMPA (PERAMPANEL) [Interacting]
     Route: 048
     Dates: start: 20130407, end: 20130414
  6. FYCOMPA (PERAMPANEL) [Interacting]
     Route: 048
     Dates: start: 20130415, end: 20130416
  7. FYCOMPA (PERAMPANEL) [Interacting]
     Route: 048
     Dates: start: 20130417, end: 20130424
  8. PHENYTOIN [Interacting]
     Indication: EPILEPSY
     Dosage: 200 MG DAILY
     Route: 048
     Dates: start: 201012, end: 2013
  9. PHENYTOIN [Interacting]
     Dosage: 75 MG DAILY
     Route: 048
     Dates: start: 2013
  10. CITALOPRAM [Interacting]
     Indication: DEPRESSION
     Dosage: 40 MG DAILY
     Route: 048
  11. ZONEGRAN [Concomitant]
     Indication: EPILEPSY
     Dosage: 400 MG DAILY
     Route: 048
     Dates: start: 200702
  12. FRISIUM [Concomitant]
     Indication: EPILEPSY
     Dosage: 10 MG DAILY
     Route: 048
     Dates: start: 200804
  13. LEVETIRACETAM [Concomitant]
     Indication: EPILEPSY
     Dosage: 3000 MG DAILY
     Route: 048
     Dates: start: 201302

REACTIONS (2)
  - Cardiac arrest [Recovered/Resolved]
  - Drug interaction [Recovered/Resolved]
